FAERS Safety Report 25319568 (Version 2)
Quarter: 2025Q3

REPORT INFORMATION
  Report Type: Spontaneous
  Country: TW (occurrence: TW)
  Receive Date: 20250515
  Receipt Date: 20250721
  Transmission Date: 20251020
  Serious: Yes (Hospitalization, Other)
  Sender: SANOFI AVENTIS
  Company Number: TW-SA-2025SA135800

PATIENT
  Age: 47 Year
  Sex: Male
  Weight: 82.9 kg

DRUGS (15)
  1. UNSPECIFIED INGREDIENT [Suspect]
     Active Substance: UNSPECIFIED INGREDIENT
  2. OZEMPIC [Suspect]
     Active Substance: SEMAGLUTIDE
     Dosage: QW
     Route: 058
     Dates: start: 20230316, end: 20230706
  3. OZEMPIC [Suspect]
     Active Substance: SEMAGLUTIDE
     Dosage: QW
     Route: 058
     Dates: start: 20231207, end: 20240425
  4. AMARYL [Concomitant]
     Active Substance: GLIMEPIRIDE
     Dosage: BID
     Route: 048
     Dates: start: 20230316
  5. ASPIRIN [Concomitant]
     Active Substance: ASPIRIN
     Dosage: QD
     Route: 048
     Dates: start: 20120830
  6. EURICON [Concomitant]
     Dosage: QD
     Route: 048
     Dates: start: 20140109
  7. EXFORGE HCT [AMLODIPINE BESILATE;HYDROCHLOROTHIAZIDE;VALSARTAN] [Concomitant]
     Dosage: QD
     Route: 048
     Dates: start: 20150430
  8. EZETIMIBE [Concomitant]
     Active Substance: EZETIMIBE
     Dosage: QD
     Route: 048
     Dates: start: 20141113
  9. BISOPROLOL [Concomitant]
     Active Substance: BISOPROLOL
     Dosage: QD
     Route: 048
     Dates: start: 20151022
  10. LIPITOR [Concomitant]
     Active Substance: ATORVASTATIN CALCIUM
     Dosage: QD
     Route: 048
     Dates: start: 20210311
  11. FENOFIBRATE [Concomitant]
     Active Substance: FENOFIBRATE
     Dosage: QD
     Route: 048
     Dates: start: 20200319
  12. METFORMIN HYDROCHLORIDE [Concomitant]
     Active Substance: METFORMIN HYDROCHLORIDE
     Dosage: BID
     Route: 048
     Dates: start: 20170706
  13. NOLIDIN [Concomitant]
     Dosage: QD
     Route: 048
     Dates: start: 20230907
  14. LEVEMIR [Concomitant]
     Active Substance: INSULIN DETEMIR
     Dosage: BID
     Route: 058
     Dates: start: 20230907
  15. METFORMIN HYDROCHLORIDE [Concomitant]
     Active Substance: METFORMIN HYDROCHLORIDE
     Dosage: BID
     Route: 048
     Dates: start: 20170706

REACTIONS (10)
  - Pancreatitis acute [Recovered/Resolved]
  - Pancreatitis acute [Recovered/Resolved]
  - Abdominal pain upper [Recovered/Resolved]
  - Pyrexia [Recovered/Resolved]
  - Compression fracture [Unknown]
  - Hepatic steatosis [Unknown]
  - Renal cyst [Unknown]
  - Scoliosis [Unknown]
  - Arteriosclerosis [Unknown]
  - Spinal osteoarthritis [Unknown]

NARRATIVE: CASE EVENT DATE: 20230812
